FAERS Safety Report 12373999 (Version 1)
Quarter: 2016Q2

REPORT INFORMATION
  Report Type: Spontaneous
  Country: FR (occurrence: FR)
  Receive Date: 20160517
  Receipt Date: 20160517
  Transmission Date: 20160815
  Serious: Yes (Hospitalization)
  Sender: FDA-Public Use
  Company Number: FR-ROCHE-1756448

PATIENT
  Age: 19 Year
  Sex: Male

DRUGS (21)
  1. THERALENE (FRANCE) [Suspect]
     Active Substance: TRIMEPRAZINE
     Indication: PRODUCT USED FOR UNKNOWN INDICATION
     Route: 065
  2. VALIUM [Suspect]
     Active Substance: DIAZEPAM
     Dosage: DRINKABLE SOLUTION IN DROPS
     Route: 048
     Dates: start: 20160407, end: 20160410
  3. RISPERDAL [Suspect]
     Active Substance: RISPERIDONE
     Route: 048
     Dates: start: 20160405, end: 20160406
  4. RISPERDAL [Suspect]
     Active Substance: RISPERIDONE
     Route: 048
     Dates: start: 20160407, end: 20160410
  5. IMOVANE [Suspect]
     Active Substance: ZOPICLONE
     Indication: PRODUCT USED FOR UNKNOWN INDICATION
     Route: 048
     Dates: start: 20160331, end: 20160410
  6. THERALENE (FRANCE) [Suspect]
     Active Substance: TRIMEPRAZINE
     Route: 048
     Dates: start: 20160331, end: 20160410
  7. VALIUM [Suspect]
     Active Substance: DIAZEPAM
     Dosage: DRINKABLE SOLUTION IN DROPS
     Route: 048
     Dates: start: 20160406, end: 20160406
  8. LARGACTIL [Suspect]
     Active Substance: CHLORPROMAZINE
     Dosage: COATED SCORED TABLET
     Route: 048
     Dates: start: 20160412, end: 20160412
  9. RISPERDAL [Suspect]
     Active Substance: RISPERIDONE
     Route: 048
     Dates: start: 20160402, end: 20160403
  10. LARGACTIL [Suspect]
     Active Substance: CHLORPROMAZINE
     Dosage: COATED SCORED TABLET
     Route: 048
     Dates: start: 20160405, end: 20160406
  11. LARGACTIL [Suspect]
     Active Substance: CHLORPROMAZINE
     Dosage: COATED SCORED TABLET
     Route: 048
     Dates: start: 20160407, end: 20160410
  12. LARGACTIL [Suspect]
     Active Substance: CHLORPROMAZINE
     Dosage: COATED SCORED TABLET
     Route: 048
     Dates: start: 20160404, end: 20160404
  13. LARGACTIL [Suspect]
     Active Substance: CHLORPROMAZINE
     Route: 048
     Dates: start: 20160411, end: 20160411
  14. RISPERDAL [Suspect]
     Active Substance: RISPERIDONE
     Dosage: 1 MG/ML
     Route: 065
  15. LOXAPAC [Concomitant]
     Active Substance: LOXAPINE SUCCINATE
     Dosage: 2 VIALS
     Route: 065
     Dates: start: 20160323
  16. LEPTICUR [Concomitant]
     Active Substance: TROPATEPINE HYDROCHLORIDE
     Dosage: 1 VIAL
     Route: 065
     Dates: start: 20160323
  17. VALIUM [Suspect]
     Active Substance: DIAZEPAM
     Indication: PRODUCT USED FOR UNKNOWN INDICATION
     Route: 065
     Dates: start: 20160323
  18. LARGACTIL [Suspect]
     Active Substance: CHLORPROMAZINE
     Indication: PRODUCT USED FOR UNKNOWN INDICATION
     Dosage: COATED SCORED TABLET
     Route: 048
     Dates: start: 20160331, end: 20160403
  19. LARGACTIL [Suspect]
     Active Substance: CHLORPROMAZINE
     Route: 065
  20. RISPERDAL [Suspect]
     Active Substance: RISPERIDONE
     Indication: PRODUCT USED FOR UNKNOWN INDICATION
     Route: 048
     Dates: start: 20160401, end: 20160401
  21. RISPERDAL [Suspect]
     Active Substance: RISPERIDONE
     Route: 048
     Dates: start: 20160404, end: 20160404

REACTIONS (3)
  - Hypothermia [Recovered/Resolved]
  - Hypotension [Recovered/Resolved]
  - Bradycardia [Recovered/Resolved]

NARRATIVE: CASE EVENT DATE: 20160410
